FAERS Safety Report 21890474 (Version 1)
Quarter: 2023Q1

REPORT INFORMATION
  Report Type: Spontaneous
  Country: US (occurrence: None)
  Receive Date: 20230119
  Receipt Date: 20230119
  Transmission Date: 20230417
  Serious: No
  Sender: FDA-Public Use
  Company Number: None

PATIENT
  Sex: Female
  Weight: 55.34 kg

DRUGS (13)
  1. CAPECITABINE [Suspect]
     Active Substance: CAPECITABINE
     Indication: Breast cancer female
     Dosage: OTHER FREQUENCY : AM/PM;?
     Route: 048
  2. BIOTENE [Concomitant]
  3. CENTRUM [Concomitant]
  4. COZAAR [Concomitant]
  5. EXEMESTANE [Concomitant]
  6. LOMOTIL [Concomitant]
  7. PEPCID [Concomitant]
  8. PERIDEX [Concomitant]
  9. ROSUVASTATIN [Concomitant]
  10. VITAMIN B12 [Concomitant]
  11. VITAMIN D2 [Concomitant]
  12. XANAX [Concomitant]
  13. ZOLOFT [Concomitant]

REACTIONS (1)
  - Breast cancer [None]
